FAERS Safety Report 6174486-9 (Version None)
Quarter: 2009Q2

REPORT INFORMATION
  Report Type: 
  Country: None (occurrence: None)
  Receive Date: 20090430
  Receipt Date: 20080808
  Transmission Date: 20091009
  Serious: No
  Sender: FDA-Public Use
  Company Number: US-ASTRAZENECA-2008UW12596

PATIENT
  Age: 75 Year
  Sex: Male
  Weight: 89.8 kg

DRUGS (6)
  1. NEXIUM [Suspect]
     Indication: REFLUX OESOPHAGITIS
     Route: 048
  2. NEXIUM [Suspect]
     Indication: ULCER
     Route: 048
  3. SIMVASTATIN [Concomitant]
  4. LISINOPRIL [Concomitant]
  5. MINOXIDE [Concomitant]
  6. DIOVAN [Concomitant]

REACTIONS (5)
  - DIARRHOEA [None]
  - FATIGUE [None]
  - FEELING ABNORMAL [None]
  - HEADACHE [None]
  - PYREXIA [None]
